FAERS Safety Report 4541011-5 (Version None)
Quarter: 2004Q4

REPORT INFORMATION
  Report Type: 
  Country: None (occurrence: None)
  Receive Date: 20041228
  Receipt Date: 20041215
  Transmission Date: 20050328
  Serious: Yes (Hospitalization)
  Sender: FDA-Public Use
  Company Number: 2004SE07016

PATIENT
  Age: 4 Year
  Sex: Female

DRUGS (2)
  1. PULMICORT [Suspect]
     Indication: ASTHMA
     Dosage: 100 UG BID IH
     Route: 055
     Dates: start: 20041006, end: 20041206
  2. VENTOLINE EVOHALER [Concomitant]

REACTIONS (3)
  - ASTHMA [None]
  - DEVICE FAILURE [None]
  - PHARMACEUTICAL PRODUCT COMPLAINT [None]
